FAERS Safety Report 22143348 (Version 1)
Quarter: 2023Q1

REPORT INFORMATION
  Report Type: Spontaneous
  Country: GB (occurrence: GB)
  Receive Date: 20230327
  Receipt Date: 20230327
  Transmission Date: 20230417
  Serious: Yes (Death, Life-Threatening, Hospitalization, Disabling)
  Sender: FDA-Public Use
  Company Number: GB-MHRA-MED-202303221458000700-KZJLP

PATIENT
  Sex: Female

DRUGS (1)
  1. BROMOCRIPTINE [Suspect]
     Active Substance: BROMOCRIPTINE
     Indication: Suppressed lactation
     Dosage: UNK
     Route: 065
     Dates: start: 20221111, end: 20221117

REACTIONS (1)
  - Cerebral haemorrhage [Fatal]
